FAERS Safety Report 24913066 (Version 2)
Quarter: 2025Q1

REPORT INFORMATION
  Report Type: Report from Study
  Country: CA (occurrence: CA)
  Receive Date: 20250201
  Receipt Date: 20250217
  Transmission Date: 20250409
  Serious: Yes (Hospitalization)
  Sender: ABBVIE
  Company Number: CA-ABBVIE-6110106

PATIENT
  Age: 49 Year
  Sex: Female

DRUGS (2)
  1. QULIPTA [Suspect]
     Active Substance: ATOGEPANT
     Indication: Migraine
     Dosage: LAST ADMIN DATE: JAN 2025
     Route: 048
     Dates: start: 20250122
  2. QULIPTA [Suspect]
     Active Substance: ATOGEPANT
     Indication: Migraine
     Route: 048
     Dates: start: 20250128

REACTIONS (11)
  - Neck pain [Recovering/Resolving]
  - Fatigue [Unknown]
  - Headache [Recovering/Resolving]
  - Tremor [Recovering/Resolving]
  - Wrong technique in product usage process [Unknown]
  - Chills [Recovering/Resolving]
  - Eye pain [Recovering/Resolving]
  - Migraine [Recovering/Resolving]
  - Constipation [Unknown]
  - Brain fog [Unknown]
  - Drug ineffective [Unknown]

NARRATIVE: CASE EVENT DATE: 20250101
